FAERS Safety Report 14194333 (Version 2)
Quarter: 2017Q4

REPORT INFORMATION
  Report Type: Spontaneous
  Country: US (occurrence: US)
  Receive Date: 20171116
  Receipt Date: 20171120
  Transmission Date: 20180321
  Serious: No
  Sender: FDA-Public Use
  Company Number: US-PFIZER INC-2017490466

PATIENT
  Age: 63 Year
  Sex: Male
  Weight: 102.1 kg

DRUGS (2)
  1. ZYVOX [Suspect]
     Active Substance: LINEZOLID
     Dosage: UNK
     Route: 041
  2. ZYVOX [Suspect]
     Active Substance: LINEZOLID
     Dosage: 600MG/300ML BAG

REACTIONS (2)
  - Extravasation [Unknown]
  - Application site discomfort [Unknown]
